FAERS Safety Report 7901017-2 (Version None)
Quarter: 2011Q4

REPORT INFORMATION
  Report Type: 
  Country: None (occurrence: None)
  Receive Date: 20111108
  Receipt Date: 20111103
  Transmission Date: 20120403
  Serious: Yes (Congenital Anomaly, Other)
  Sender: FDA-Public Use
  Company Number: US-PFIZER INC-2011270398

PATIENT
  Sex: Male

DRUGS (1)
  1. ZOLOFT [Suspect]
     Dosage: UNK
     Route: 064
     Dates: start: 20040501

REACTIONS (4)
  - CONGENITAL ANOMALY [None]
  - CLEFT PALATE [None]
  - TALIPES [None]
  - MATERNAL EXPOSURE TIMING UNSPECIFIED [None]
